FAERS Safety Report 9397210 (Version 1)
Quarter: 2013Q3

REPORT INFORMATION
  Report Type: Spontaneous
  Country: US (occurrence: None)
  Receive Date: 20130710
  Receipt Date: 20130710
  Transmission Date: 20140515
  Serious: Yes (Other)
  Sender: FDA-Public Use
  Company Number: None

PATIENT
  Age: 44 Year
  Sex: Female

DRUGS (1)
  1. HUMIRA [Suspect]
     Indication: CROHN^S DISEASE
     Dosage: EVERY 2 WEEKS
     Route: 058
     Dates: start: 20130404, end: 201306

REACTIONS (3)
  - Rash erythematous [None]
  - Ulcer [None]
  - Crohn^s disease [None]
